FAERS Safety Report 8256686-7 (Version None)
Quarter: 2012Q2

REPORT INFORMATION
  Report Type: 
  Country: None (occurrence: None)
  Receive Date: 20120403
  Receipt Date: 20120329
  Transmission Date: 20120825
  Serious: Yes (Other)
  Sender: FDA-Public Use
  Company Number: US-ASTRAZENECA-2010SE21224

PATIENT
  Age: 88 Year
  Sex: Female
  Weight: 62.6 kg

DRUGS (12)
  1. NEXIUM [Suspect]
     Indication: GASTROOESOPHAGEAL REFLUX DISEASE
     Route: 048
     Dates: start: 20070101
  2. LIPITOR [Concomitant]
  3. ASPIRIN [Concomitant]
     Indication: ANGIOPATHY
  4. NEXIUM [Suspect]
     Indication: EROSIVE OESOPHAGITIS
     Route: 048
     Dates: start: 20070101
  5. AMBUVENT FLUVENT [Concomitant]
     Dosage: AS NEEDED
  6. AMLODIPINE [Concomitant]
     Indication: BLOOD PRESSURE ABNORMAL
  7. ALPRAZOLAM [Concomitant]
  8. PLAVIX [Concomitant]
  9. IRON [Concomitant]
  10. METOPROLOL SUCCINATE [Concomitant]
  11. ALLOPURINOL [Concomitant]
  12. DIOVAN [Concomitant]
     Indication: BLOOD PRESSURE ABNORMAL

REACTIONS (9)
  - ABASIA [None]
  - FRACTURE [None]
  - DIVERTICULITIS [None]
  - TRANSIENT ISCHAEMIC ATTACK [None]
  - TREMOR [None]
  - BACK PAIN [None]
  - DRUG DOSE OMISSION [None]
  - CEREBROVASCULAR ACCIDENT [None]
  - OESOPHAGEAL PAIN [None]
